FAERS Safety Report 4488836-2 (Version None)
Quarter: 2004Q4

REPORT INFORMATION
  Report Type: 
  Country: None (occurrence: None)
  Receive Date: 20041029
  Receipt Date: 20041004
  Transmission Date: 20050328
  Serious: Yes (Hospitalization)
  Sender: FDA-Public Use
  Company Number: DE-MERCK-0410DEU00064

PATIENT
  Age: 58 Year
  Sex: Male
  Weight: 69 kg

DRUGS (2)
  1. VIOXX [Suspect]
     Indication: LOCALISED OSTEOARTHRITIS
     Route: 048
     Dates: start: 20001001, end: 20040921
  2. [THERAPY UNSPECIFIED] [Concomitant]
     Indication: INDUCTION AND MAINTENANCE OF ANAESTHESIA
     Route: 065
     Dates: start: 20040921, end: 20040921

REACTIONS (2)
  - CRANIAL NERVE PARALYSIS [None]
  - MUSCULOSKELETAL DISCOMFORT [None]
